FAERS Safety Report 13991596 (Version 4)
Quarter: 2022Q3

REPORT INFORMATION
  Report Type: Spontaneous
  Country: US (occurrence: US)
  Receive Date: 20170920
  Receipt Date: 20220721
  Transmission Date: 20221027
  Serious: Yes (Other)
  Sender: FDA-Public Use
  Company Number: US-JNJFOC-20170802677

PATIENT
  Age: 15 Year
  Sex: Male

DRUGS (3)
  1. RISPERDAL [Suspect]
     Active Substance: RISPERIDONE
     Indication: Mania
     Route: 048
     Dates: start: 2001, end: 2002
  2. RISPERDAL [Suspect]
     Active Substance: RISPERIDONE
     Indication: Bipolar disorder
  3. RISPERIDONE [Suspect]
     Active Substance: RISPERIDONE
     Indication: Mania
     Route: 048
     Dates: start: 20030723, end: 20040329

REACTIONS (5)
  - Gynaecomastia [Unknown]
  - Treatment noncompliance [Unknown]
  - Emotional distress [Unknown]
  - Off label use [Unknown]
  - Product use in unapproved indication [Unknown]

NARRATIVE: CASE EVENT DATE: 20030723
